FAERS Safety Report 5159338-5 (Version None)
Quarter: 2006Q4

REPORT INFORMATION
  Report Type: 
  Country: None (occurrence: None)
  Receive Date: 20061120
  Receipt Date: 20061110
  Transmission Date: 20070319
  Serious: Yes (Other)
  Sender: FDA-Public Use
  Company Number: TRP_0890_2006

PATIENT
  Age: 49 Year
  Sex: Female

DRUGS (3)
  1. RIBASPHERE [Suspect]
     Indication: HEPATITIS C
     Dosage: DF PO
     Route: 048
     Dates: start: 20060727
  2. PEG-INTRON [Suspect]
     Indication: HEPATITIS C
     Dosage: DF QWK SC
     Route: 058
     Dates: start: 20060727
  3. SYNTHROID [Concomitant]

REACTIONS (6)
  - AGITATION [None]
  - HEADACHE [None]
  - HYPERTHYROIDISM [None]
  - PRURITUS [None]
  - VISION BLURRED [None]
  - VISUAL DISTURBANCE [None]
